FAERS Safety Report 7307900-3 (Version None)
Quarter: 2011Q1

REPORT INFORMATION
  Report Type: 
  Country: None (occurrence: None)
  Receive Date: 20110223
  Receipt Date: 20110208
  Transmission Date: 20110831
  Serious: Yes (Hospitalization)
  Sender: FDA-Public Use
  Company Number: DE-PFIZER INC-DE-WYE-G04055609

PATIENT
  Age: 72 Year
  Sex: Female
  Weight: 80 kg

DRUGS (22)
  1. FERRO SANOL [Concomitant]
     Indication: IRON DEFICIENCY ANAEMIA
     Dosage: 40 MG, 1X/DAY
     Route: 048
     Dates: start: 20090301, end: 20090422
  2. INSULIN DETEMIR [Concomitant]
     Indication: TYPE 2 DIABETES MELLITUS
     Dosage: 14 IU, 1X/DAY
     Route: 058
     Dates: start: 20090101
  3. ALLOPURINOL [Concomitant]
     Indication: GOUT
     Dosage: 150 MG, 1X/DAY
     Route: 048
     Dates: start: 20090101, end: 20090422
  4. TAVANIC [Interacting]
     Dosage: 500 MG, 1X/DAY
     Route: 048
     Dates: start: 20090423, end: 20090427
  5. ISCOVER [Concomitant]
     Indication: MYOCARDIAL INFARCTION
     Dosage: 75 MG, 1X/DAY
     Route: 048
     Dates: start: 20090101
  6. DIGITOXIN [Concomitant]
     Indication: ATRIAL FIBRILLATION
     Dosage: 0.07 MG, 1X/DAY
     Route: 048
     Dates: start: 20090101, end: 20090422
  7. TAZOBAC EF [Interacting]
     Indication: URINARY TRACT INFECTION
  8. METRONIDAZOLE [Interacting]
     Dosage: 500 MG, 2X/DAY
     Route: 048
     Dates: start: 20090425, end: 20090428
  9. SULTAMICILLIN [Interacting]
     Indication: UROSEPSIS
     Dosage: 3.0 G, 3X/DAY
     Route: 042
     Dates: start: 20090313, end: 20090314
  10. TAZOBAC EF [Suspect]
     Indication: UROSEPSIS
     Dosage: 3 DF, 3X/DAY
     Route: 041
     Dates: start: 20090315, end: 20090324
  11. GABAPENTIN [Concomitant]
     Indication: PHANTOM PAIN
     Dosage: 100 MG, 3X/DAY
     Route: 048
     Dates: start: 20090201, end: 20090422
  12. SULTAMICILLIN [Interacting]
     Indication: URINARY TRACT INFECTION
  13. ASPIRIN [Concomitant]
     Indication: ISCHAEMIC HEART DISEASE PROPHYLAXIS
     Dosage: 100 MG, 1X/DAY
     Route: 048
     Dates: start: 20090101
  14. TORASEMIDE [Concomitant]
     Indication: HYPERTENSION
     Dosage: 5 MG, 1X/DAY
     Route: 048
     Dates: start: 20090301, end: 20090422
  15. INSULIN ACTRAPID ^NOVO NORDISK^ [Concomitant]
     Indication: TYPE 2 DIABETES MELLITUS
     Dosage: 3 DF, 3X/DAY
     Route: 058
     Dates: start: 20090101
  16. XIPAMIDE [Concomitant]
     Indication: HYPERTENSION
     Dosage: 20 MG, 1X/DAY
     Route: 048
     Dates: start: 20090101, end: 20090422
  17. PANTOZOL [Interacting]
     Dosage: 40.0 MG, 1X/DAY
     Route: 048
     Dates: start: 20090101
  18. METRONIDAZOLE [Interacting]
     Indication: DIARRHOEA
     Dosage: 500 MG, 2X/DAY
     Route: 048
     Dates: start: 20090217, end: 20090226
  19. TAVANIC [Interacting]
     Indication: URINARY TRACT INFECTION
     Dosage: 500.0 MG, 1X/DAY
     Route: 048
     Dates: start: 20090203, end: 20090209
  20. FUROSEMIDE [Concomitant]
     Indication: HYPERTENSION
     Dosage: 40 MG, 1X/DAY
     Route: 048
     Dates: start: 20090101
  21. METOPROLOL [Concomitant]
     Indication: HYPERTENSION
     Dosage: 25 MG, 1X/DAY
     Route: 048
     Dates: start: 20090101, end: 20090429
  22. RAMIPRIL [Concomitant]
     Indication: HYPERTENSION
     Dosage: 1.25 MG, 1X/DAY
     Route: 065
     Dates: start: 20090201, end: 20090422

REACTIONS (2)
  - DRUG INTERACTION [None]
  - CLOSTRIDIUM DIFFICILE COLITIS [None]
